FAERS Safety Report 8816460 (Version 1)
Quarter: 2012Q4

REPORT INFORMATION
  Report Type: Spontaneous
  Country: US (occurrence: None)
  Receive Date: 20120928
  Receipt Date: 20120928
  Transmission Date: 20130627
  Serious: Yes (Hospitalization)
  Sender: FDA-Public Use
  Company Number: None

PATIENT
  Age: 48 Year
  Sex: Female

DRUGS (1)
  1. ARMOUR THYROID [Suspect]
     Indication: HYPOTHYROIDISM
     Route: 048
     Dates: start: 20120716, end: 20120831

REACTIONS (8)
  - Stevens-Johnson syndrome [None]
  - Fatigue [None]
  - Sensation of heaviness [None]
  - Nervousness [None]
  - Insomnia [None]
  - Headache [None]
  - Palpitations [None]
  - Feeling hot [None]
